APPROVED DRUG PRODUCT: EMEND
Active Ingredient: APREPITANT
Strength: 80MG
Dosage Form/Route: CAPSULE;ORAL
Application: N021549 | Product #001 | TE Code: AB
Applicant: MERCK SHARP AND DOHME LLC
Approved: Mar 26, 2003 | RLD: Yes | RS: No | Type: RX

PATENTS:
Patent 8258132 | Expires: Sep 26, 2027
Patent 8258132 | Expires: Sep 26, 2027